FAERS Safety Report 4805393-9 (Version None)
Quarter: 2005Q4

REPORT INFORMATION
  Report Type: 
  Country: None (occurrence: None)
  Receive Date: 20051017
  Receipt Date: 20051003
  Transmission Date: 20060501
  Serious: Yes (Hospitalization)
  Sender: FDA-Public Use
  Company Number: BASF-05-013

PATIENT
  Age: 79 Year
  Sex: Male

DRUGS (3)
  1. IBUPROFEN TABLETS [Suspect]
     Dosage: 800 MG TID, ORAL
     Route: 048
     Dates: start: 20050906
  2. OXYCODONE [Concomitant]
  3. OXYCONTIN [Concomitant]

REACTIONS (3)
  - CONFUSIONAL STATE [None]
  - DYSPNOEA [None]
  - MENTAL STATUS CHANGES [None]
